FAERS Safety Report 9606691 (Version 1)
Quarter: 2013Q4

REPORT INFORMATION
  Report Type: Spontaneous
  Country: US (occurrence: US)
  Receive Date: 20131008
  Receipt Date: 20131008
  Transmission Date: 20140711
  Serious: No
  Sender: FDA-Public Use
  Company Number: US-AMGEN-USASP2013065755

PATIENT
  Sex: 0

DRUGS (3)
  1. PROLIA [Suspect]
     Indication: PRODUCT USED FOR UNKNOWN INDICATION
     Dosage: UNK
     Route: 065
  2. CALCIUM [Concomitant]
     Dosage: 1000 MG, QD
     Route: 065
  3. VITAMIN D                          /00107901/ [Concomitant]
     Dosage: 400 IU, QD
     Route: 065

REACTIONS (1)
  - Vitamin D decreased [Unknown]
